FAERS Safety Report 8211277-9 (Version None)
Quarter: 2012Q1

REPORT INFORMATION
  Report Type: 
  Country: None (occurrence: None)
  Receive Date: 20120228
  Receipt Date: 20110825
  Transmission Date: 20120608
  Serious: Yes (Hospitalization, Other)
  Sender: FDA-Public Use
  Company Number: RB-31844-2011

PATIENT
  Sex: Female

DRUGS (2)
  1. SUBOXONE [Suspect]
     Indication: SUBSTANCE ABUSE
     Dosage: (TRANSPLACENTAL)
     Route: 064
     Dates: end: 20101201
  2. SUBUTEX [Suspect]
     Indication: DRUG DEPENDENCE
     Dosage: (16 MG TRANSPLACENTAL)
     Route: 064
     Dates: start: 20101201, end: 20110701

REACTIONS (2)
  - FOETAL EXPOSURE DURING PREGNANCY [None]
  - DRUG WITHDRAWAL SYNDROME NEONATAL [None]
